FAERS Safety Report 17021743 (Version 1)
Quarter: 2019Q4

REPORT INFORMATION
  Report Type: Spontaneous
  Country: US (occurrence: US)
  Receive Date: 20191111
  Receipt Date: 20191111
  Transmission Date: 20200122
  Serious: Yes (Hospitalization)
  Sender: FDA-Public Use
  Company Number: None

PATIENT
  Age: 79 Year
  Sex: Female

DRUGS (12)
  1. ATORVASTATIN [Concomitant]
     Active Substance: ATORVASTATIN
  2. METAMUCIL [Concomitant]
     Active Substance: PLANTAGO SEED
  3. POLYETH GLYC POW [Concomitant]
  4. LEVOFLOXACIN. [Concomitant]
     Active Substance: LEVOFLOXACIN
  5. BENZTROPINE. [Concomitant]
     Active Substance: BENZTROPINE
  6. BOTOX [Suspect]
     Active Substance: ONABOTULINUMTOXINA
     Indication: MIGRAINE
     Dosage: ?          OTHER FREQUENCY:EVERY 90 DAYS;?
     Route: 030
     Dates: start: 20181115
  7. ALBUTEROL HFA [Concomitant]
     Active Substance: ALBUTEROL SULFATE
  8. AMPICILLIN [Concomitant]
     Active Substance: AMPICILLIN
  9. FLUTICASONE. [Concomitant]
     Active Substance: FLUTICASONE
  10. ARIPIPRAZOLE. [Concomitant]
     Active Substance: ARIPIPRAZOLE
  11. DONEPEZIL. [Concomitant]
     Active Substance: DONEPEZIL
  12. OPTICHAMBER [Concomitant]

REACTIONS (2)
  - Disease complication [None]
  - Hospitalisation [None]
